FAERS Safety Report 18043030 (Version 1)
Quarter: 2020Q3

REPORT INFORMATION
  Report Type: Spontaneous
  Country: FR (occurrence: FR)
  Receive Date: 20200720
  Receipt Date: 20200720
  Transmission Date: 20201103
  Serious: Yes (Hospitalization)
  Sender: FDA-Public Use
  Company Number: FR-ACCORD-191044

PATIENT
  Age: 13 Year
  Sex: Female
  Weight: 53 kg

DRUGS (6)
  1. PARACETAMOL B BRAUN [Concomitant]
     Active Substance: ACETAMINOPHEN
     Indication: PROCEDURAL PAIN
     Dosage: STRENGTH: 10 MG / ML
     Route: 041
     Dates: start: 20200615
  2. ONDANSETRON ACCORD [Suspect]
     Active Substance: ONDANSETRON
     Indication: VOMITING
     Dosage: STRENGTH: 2 MG/ML
     Route: 041
     Dates: start: 20200616, end: 20200616
  3. PROPOFOL. [Suspect]
     Active Substance: PROPOFOL
     Indication: GENERAL ANAESTHESIA
     Dosage: STRENGTH: 1 %, EMULSION FOR INJECTION AND FOR INFUSION
     Route: 041
     Dates: start: 20200615, end: 20200615
  4. ROPIVACAINE KABI [Concomitant]
     Active Substance: ROPIVACAINE
     Indication: PROCEDURAL PAIN
     Route: 008
     Dates: start: 20200615
  5. KETOPROFEN MEDISOL [Concomitant]
     Indication: PROCEDURAL PAIN
     Dosage: STRENGTH: 100 MG / 4 ML
     Route: 041
     Dates: start: 20200615, end: 20200616
  6. MORPHINE AGUETTANT [Concomitant]
     Active Substance: MORPHINE HYDROCHLORIDE
     Indication: PROCEDURAL PAIN
     Route: 041
     Dates: start: 20200615

REACTIONS (1)
  - Cardiogenic shock [Recovered/Resolved]

NARRATIVE: CASE EVENT DATE: 20200616
